FAERS Safety Report 5617403-X (Version None)
Quarter: 2008Q1

REPORT INFORMATION
  Report Type: 
  Country: None (occurrence: None)
  Receive Date: 20080207
  Receipt Date: 20070816
  Transmission Date: 20080703
  Serious: No
  Sender: FDA-Public Use
  Company Number: A0671184A

PATIENT
  Age: 75 Year
  Sex: Male

DRUGS (7)
  1. PAROXETINE [Suspect]
     Indication: DEPRESSION
     Dosage: 10MG PER DAY
     Route: 048
     Dates: start: 20070810
  2. LIPITOR [Concomitant]
  3. SYNTHROID [Concomitant]
  4. CARDIZEM [Concomitant]
  5. OMEPRAZOLE [Concomitant]
  6. ASPIRIN [Concomitant]
  7. ATIVAN [Concomitant]

REACTIONS (3)
  - AGEUSIA [None]
  - FEELING ABNORMAL [None]
  - HANGOVER [None]
